FAERS Safety Report 4831983-3 (Version None)
Quarter: 2005Q4

REPORT INFORMATION
  Report Type: 
  Country: None (occurrence: None)
  Receive Date: 20051118
  Receipt Date: 20051116
  Transmission Date: 20060501
  Serious: Yes (Other)
  Sender: FDA-Public Use
  Company Number: US-BRISTOL-MYERS SQUIBB COMPANY-13183553

PATIENT
  Age: 20 Year
  Sex: Male

DRUGS (4)
  1. MESNA [Suspect]
     Indication: MEDULLOBLASTOMA
     Route: 042
     Dates: start: 20051116, end: 20051116
  2. CISPLATIN [Concomitant]
  3. ONDANSETRON [Concomitant]
     Indication: PREMEDICATION
  4. DOLASETRON [Concomitant]
     Indication: PREMEDICATION

REACTIONS (3)
  - ASTHMA [None]
  - OVERDOSE [None]
  - RASH GENERALISED [None]
